FAERS Safety Report 11382142 (Version 1)
Quarter: 2015Q3

REPORT INFORMATION
  Report Type: Spontaneous
  Country: US (occurrence: US)
  Receive Date: 20150811
  Receipt Date: 20150811
  Transmission Date: 20151125
  Serious: No
  Sender: FDA-Public Use
  Company Number: US-ELI_LILLY_AND_COMPANY-US200911000385

PATIENT
  Age: 54 Year
  Sex: Male

DRUGS (3)
  1. CIALIS [Suspect]
     Active Substance: TADALAFIL
     Dosage: UNK, UNKNOWN
     Route: 065
  2. COREG [Concomitant]
     Active Substance: CARVEDILOL
  3. CIALIS [Suspect]
     Active Substance: TADALAFIL
     Indication: ERECTILE DYSFUNCTION
     Dosage: 5 MG, DAILY (1/D)
     Route: 065
     Dates: start: 20090629, end: 20091020

REACTIONS (7)
  - Testicular pain [Unknown]
  - Tachycardia [Unknown]
  - Hypoaesthesia [Unknown]
  - Sinus bradycardia [Unknown]
  - Electrocardiogram QT prolonged [Unknown]
  - Off label use [Unknown]
  - Electrocardiogram abnormal [Unknown]

NARRATIVE: CASE EVENT DATE: 20091020
